FAERS Safety Report 19481177 (Version 1)
Quarter: 2021Q3

REPORT INFORMATION
  Report Type: Spontaneous
  Country: FR (occurrence: FR)
  Receive Date: 20210701
  Receipt Date: 20210701
  Transmission Date: 20211014
  Serious: Yes (Other)
  Sender: FDA-Public Use
  Company Number: FR-UCBSA-2021028853

PATIENT
  Age: 29 Year
  Sex: Female

DRUGS (7)
  1. VIMPAT [Suspect]
     Active Substance: LACOSAMIDE
     Indication: PARTIAL SEIZURES
     Dosage: 100 MILLIGRAM, 2X/DAY (BID)
     Route: 048
     Dates: start: 202101
  2. VIMPAT [Suspect]
     Active Substance: LACOSAMIDE
     Dosage: 150 MILLIGRAM, 2X/DAY (BID)
     Route: 048
     Dates: start: 202104
  3. TRILEPTAL [Concomitant]
     Active Substance: OXCARBAZEPINE
     Dosage: UNK
     Dates: start: 202102, end: 202102
  4. TRILEPTAL [Concomitant]
     Active Substance: OXCARBAZEPINE
     Dosage: UNK
     Dates: start: 2021, end: 202105
  5. URBANYL [Concomitant]
     Active Substance: CLOBAZAM
     Indication: PARTIAL SEIZURES
     Dosage: 5 MILLIGRAM, 3X/DAY (TID)
     Route: 048
     Dates: start: 202103
  6. TRILEPTAL [Concomitant]
     Active Substance: OXCARBAZEPINE
     Indication: SEIZURE
     Dosage: INITIAL DOSE
     Dates: end: 202101
  7. KEPPRA [Suspect]
     Active Substance: LEVETIRACETAM
     Indication: PARTIAL SEIZURES
     Dosage: 750 MILLIGRAM, 2X/DAY (BID)
     Route: 048
     Dates: start: 2017

REACTIONS (8)
  - Obsessive thoughts [Unknown]
  - Anxiety [Not Recovered/Not Resolved]
  - Panic attack [Unknown]
  - Depression [Unknown]
  - Morbid thoughts [Not Recovered/Not Resolved]
  - Intrusive thoughts [Not Recovered/Not Resolved]
  - Depressed mood [Not Recovered/Not Resolved]
  - Hyponatraemia [Unknown]

NARRATIVE: CASE EVENT DATE: 2020
